FAERS Safety Report 6019205-1 (Version None)
Quarter: 2008Q4

REPORT INFORMATION
  Report Type: 
  Country: None (occurrence: None)
  Receive Date: 20081219
  Receipt Date: 20081006
  Transmission Date: 20090506
  Serious: Yes (Other)
  Sender: FDA-Public Use
  Company Number: US200810001119

PATIENT
  Age: 2 Day
  Sex: Male

DRUGS (1)
  1. HUMULIN R [Suspect]
     Indication: BLOOD GLUCOSE INCREASED
     Dosage: SUBCUTANEOUS
     Route: 058

REACTIONS (1)
  - BLOOD GLUCOSE INCREASED [None]
